FAERS Safety Report 5482284-4 (Version None)
Quarter: 2007Q4

REPORT INFORMATION
  Report Type: 
  Country: None (occurrence: None)
  Receive Date: 20071011
  Receipt Date: 20071003
  Transmission Date: 20080405
  Serious: Yes (Other)
  Sender: FDA-Public Use
  Company Number: ES-AMGEN-US246353

PATIENT
  Age: 43 Year
  Sex: Male
  Weight: 85 kg

DRUGS (1)
  1. ENBREL [Suspect]
     Indication: PSORIATIC ARTHROPATHY
     Dosage: 50 MG
     Route: 058
     Dates: start: 20070601, end: 20070901

REACTIONS (3)
  - INJECTION SITE INDURATION [None]
  - INJECTION SITE INFLAMMATION [None]
  - SKIN REACTION [None]
